FAERS Safety Report 5216879-X (Version None)
Quarter: 2007Q1

REPORT INFORMATION
  Report Type: 
  Country: None (occurrence: None)
  Receive Date: 20070119
  Receipt Date: 20070103
  Transmission Date: 20070707
  Serious: Yes (Death)
  Sender: FDA-Public Use
  Company Number: 8021058

PATIENT
  Sex: Male

DRUGS (11)
  1. LORTAB [Suspect]
     Indication: PAIN
  2. LORCET-HD [Suspect]
     Indication: PAIN
  3. TALWIN NX [Suspect]
     Indication: PAIN
  4. AMBIEN [Suspect]
     Indication: PAIN
  5. NORCO [Suspect]
     Indication: PAIN
  6. VICODIN [Suspect]
     Indication: PAIN
  7. TEMAZEPAM [Suspect]
     Indication: PAIN
  8. DALMANE [Suspect]
     Indication: PAIN
  9. RESTORIL [Suspect]
     Indication: PAIN
  10. LIDODERM [Suspect]
     Indication: PAIN
  11. LIDOPAIN [Suspect]
     Indication: PAIN

REACTIONS (10)
  - ABNORMAL DREAMS [None]
  - AMNESIA [None]
  - ANXIETY [None]
  - CONFUSIONAL STATE [None]
  - DEPRESSION [None]
  - HALLUCINATION [None]
  - MOOD ALTERED [None]
  - NERVOUSNESS [None]
  - SUICIDAL IDEATION [None]
  - VISUAL DISTURBANCE [None]
